FAERS Safety Report 10442364 (Version 2)
Quarter: 2015Q1

REPORT INFORMATION
  Report Type: Spontaneous
  Country: IT (occurrence: IT)
  Receive Date: 20140909
  Receipt Date: 20150105
  Transmission Date: 20150720
  Serious: Yes (Hospitalization)
  Sender: FDA-Public Use
  Company Number: IT-TEVA-506173ISR

PATIENT
  Age: 72 Year
  Sex: Female

DRUGS (6)
  1. TORVAST [Concomitant]
     Active Substance: ATORVASTATIN
     Dosage: 10 MILLIGRAM DAILY;
     Route: 048
  2. ANAFRANIL 25 MG [Concomitant]
     Indication: DEPRESSION
     Dosage: 2 DOSAGE FORMS DAILY;
     Route: 048
  3. ENTACT 10 MG [Suspect]
     Active Substance: ESCITALOPRAM OXALATE
     Indication: DEPRESSION
     Dosage: 20 MILLIGRAM DAILY;
     Route: 048
     Dates: end: 20140809
  4. EUTIROX 50 MCG [Concomitant]
     Dosage: 1 DOSAGE FORMS DAILY;
     Route: 048
  5. CARDIOAPSIRIN 100 MG [Concomitant]
     Dosage: 1 DOSAGE FORMS DAILY;
     Route: 048
  6. CARBOLITHIUM 300 MG [Suspect]
     Active Substance: LITHIUM CARBONATE
     Indication: BIPOLAR DISORDER
     Dosage: 450 MILLIGRAM DAILY;
     Route: 048
     Dates: start: 20140725, end: 20140809

REACTIONS (4)
  - Balance disorder [Recovering/Resolving]
  - Acute kidney injury [Recovering/Resolving]
  - Tremor [Recovering/Resolving]
  - Disturbance in attention [Recovering/Resolving]

NARRATIVE: CASE EVENT DATE: 20140809
